FAERS Safety Report 6376002-5 (Version None)
Quarter: 2009Q3

REPORT INFORMATION
  Report Type: 
  Country: None (occurrence: None)
  Receive Date: 20090921
  Receipt Date: 20090910
  Transmission Date: 20100115
  Serious: Yes (Other)
  Sender: FDA-Public Use
  Company Number: 2009-03499

PATIENT
  Sex: Male

DRUGS (2)
  1. VELCADE [Suspect]
     Indication: DRUG USE FOR UNKNOWN INDICATION
     Dosage: 1.75 MG, INTRAVENOUS; 0.7 MG, INTRAVENOUS
     Route: 042
     Dates: start: 20090309, end: 20090615
  2. VELCADE [Suspect]
     Indication: DRUG USE FOR UNKNOWN INDICATION
     Dosage: 1.75 MG, INTRAVENOUS; 0.7 MG, INTRAVENOUS
     Route: 042
     Dates: start: 20080901

REACTIONS (2)
  - MUSCULAR WEAKNESS [None]
  - PAIN IN EXTREMITY [None]
